FAERS Safety Report 8018894-X (Version None)
Quarter: 2012Q1

REPORT INFORMATION
  Report Type: 
  Country: None (occurrence: None)
  Receive Date: 20120103
  Receipt Date: 20111229
  Transmission Date: 20120608
  Serious: Yes (Other)
  Sender: FDA-Public Use
  Company Number: US-PFIZER INC-2011316556

PATIENT
  Age: 14 Month
  Sex: Female

DRUGS (2)
  1. PREMARIN [Suspect]
     Indication: GENITAL LABIAL ADHESIONS
  2. PREMARIN [Suspect]
     Indication: OFF LABEL USE
     Dosage: UNK
     Route: 067
     Dates: start: 20111101, end: 20111207

REACTIONS (1)
  - BREAST MASS [None]
